FAERS Safety Report 7626553-8 (Version None)
Quarter: 2011Q3

REPORT INFORMATION
  Report Type: 
  Country: None (occurrence: None)
  Receive Date: 20110721
  Receipt Date: 20110712
  Transmission Date: 20111222
  Serious: Yes (Hospitalization)
  Sender: FDA-Public Use
  Company Number: US-GLAXOSMITHKLINE-A0937320A

PATIENT
  Age: 41 Year
  Sex: Female

DRUGS (26)
  1. TYLENOL-500 [Concomitant]
  2. STUDY DRUG [Concomitant]
  3. WELLBUTRIN [Concomitant]
  4. VICODIN [Concomitant]
  5. PROTONIX [Concomitant]
  6. ZOFRAN [Suspect]
     Indication: NAUSEA
     Dosage: 8MG SEE DOSAGE TEXT
     Route: 042
     Dates: start: 20110606, end: 20110607
  7. PAIN MEDICATION [Suspect]
  8. NASONEX [Concomitant]
  9. RANITIDINE [Concomitant]
  10. DILAUDID [Suspect]
     Indication: PAIN
     Dosage: 1MG SEE DOSAGE TEXT
     Route: 042
     Dates: start: 20110606, end: 20110607
  11. ATARAX [Concomitant]
  12. PREVACID [Concomitant]
  13. PHENERGAN HCL [Concomitant]
  14. ALUMINUM [Concomitant]
  15. SINGULAIR [Concomitant]
  16. LIDODERM [Concomitant]
  17. SENOKOT [Concomitant]
  18. MAGNESIUM [Concomitant]
  19. FLOVENT [Concomitant]
  20. RELPAX [Concomitant]
  21. MAXAIR [Concomitant]
  22. MAXALT [Concomitant]
  23. SIMETHICON [Concomitant]
  24. TOPAMAX [Concomitant]
  25. ASTEPRO [Concomitant]
  26. ZYRTEC [Concomitant]

REACTIONS (4)
  - DEHYDRATION [None]
  - HEADACHE [None]
  - VOMITING [None]
  - MIGRAINE [None]
